FAERS Safety Report 6309106-3 (Version None)
Quarter: 2009Q3

REPORT INFORMATION
  Report Type: 
  Country: None (occurrence: None)
  Receive Date: 20090814
  Receipt Date: 20070502
  Transmission Date: 20100115
  Serious: Yes (Hospitalization, Other)
  Sender: FDA-Public Use
  Company Number: US-ASTRAZENECA-2006UW23790

PATIENT
  Age: 21125 Day
  Sex: Female
  Weight: 132.9 kg

DRUGS (36)
  1. SEROQUEL [Suspect]
     Indication: SCHIZOPHRENIA
     Route: 048
     Dates: start: 19970101, end: 20020101
  2. SEROQUEL [Suspect]
     Route: 048
     Dates: start: 20000426
  3. NAVANE [Concomitant]
  4. ARTANE [Concomitant]
     Indication: MUSCULOSKELETAL STIFFNESS
     Dosage: 2-15 MG
     Route: 048
     Dates: start: 19900320
  5. ARTANE [Concomitant]
     Indication: TREMOR
     Dosage: 2-15 MG
     Route: 048
     Dates: start: 19900320
  6. ACTOS [Concomitant]
     Dates: start: 20031008, end: 20070222
  7. LASIX [Concomitant]
     Dosage: 20-60 MG
     Route: 048
     Dates: start: 20010828
  8. LANTUS [Concomitant]
     Dosage: 12 UNITS AT NIGHT
     Dates: start: 20020222
  9. NITROGLYCERIN [Concomitant]
     Indication: ANGINA PECTORIS
     Dosage: 0.4 MG AS NEEDED
     Route: 060
     Dates: start: 20040825
  10. NITROGLYCERIN [Concomitant]
     Indication: CHEST PAIN
     Dosage: 0.4 MG AS NEEDED
     Route: 060
     Dates: start: 20040825
  11. NIASPAN ER [Concomitant]
     Dosage: 1 GM, 1000 MG 1/2 TABLET AT BEDTIME
     Dates: start: 20070222
  12. KLOR-CON [Concomitant]
     Dosage: 10-20 MEQ
     Route: 048
     Dates: start: 20010828
  13. PROTONIX [Concomitant]
     Dosage: 40-80 MG
     Dates: start: 20060101
  14. AMARYL [Concomitant]
     Dosage: 4-8 MG
     Route: 048
     Dates: start: 20031008
  15. LIPITOR [Concomitant]
     Dosage: 40-80 MG
     Dates: start: 20031008
  16. NEURONTIN [Concomitant]
     Dates: start: 20031008
  17. HUMALOG MIX [Concomitant]
     Dosage: 75/25
     Dates: start: 20060101
  18. ATENOLOL [Concomitant]
  19. ASPIRIN [Concomitant]
     Dosage: ONCE A DAY
     Dates: start: 20031008
  20. IMDUR [Concomitant]
     Route: 048
     Dates: start: 20031008
  21. DIGOXIN [Concomitant]
     Dates: start: 20060101
  22. VASOTEC [Concomitant]
     Dates: start: 20060101
  23. COREG [Concomitant]
     Dosage: 12.5-24 MG
     Dates: start: 20060101
  24. GLIPIZIDE [Concomitant]
     Dates: start: 20060101
  25. PREDNISONE [Concomitant]
     Dates: start: 20060101
  26. HUMULIN R [Concomitant]
     Dosage: 10 UNITS
     Dates: start: 20070421
  27. METHYLPREDNISOLONE 4MG TAB [Concomitant]
     Dosage: 125 MG/2 ML (10X)
     Dates: start: 20070421
  28. ATIVAN [Concomitant]
     Indication: ANXIETY
     Route: 048
     Dates: start: 20060101
  29. ATIVAN [Concomitant]
     Route: 042
     Dates: start: 20070421
  30. MECLIZINE [Concomitant]
     Indication: DIZZINESS
     Route: 048
     Dates: start: 20040825
  31. METFORMIN HCL [Concomitant]
     Route: 048
     Dates: start: 20040825
  32. CELEBREX [Concomitant]
     Route: 048
     Dates: start: 20031008
  33. DIOVAN [Concomitant]
     Route: 048
     Dates: start: 20040128
  34. ZYPREXA [Concomitant]
     Indication: NERVOUS SYSTEM DISORDER
     Dates: start: 19990408, end: 20000426
  35. ZYPREXA [Concomitant]
     Dates: start: 20010702
  36. DIAZEPAM [Concomitant]
     Indication: ANXIETY
     Dosage: 5-10 MG
     Dates: start: 19990408

REACTIONS (21)
  - ANGINA PECTORIS [None]
  - ANGINA UNSTABLE [None]
  - ARTERIOSCLEROSIS [None]
  - ARTERIOSCLEROSIS CORONARY ARTERY [None]
  - CARDIAC DISORDER [None]
  - CARDIAC FAILURE CONGESTIVE [None]
  - CARDIOMYOPATHY [None]
  - CARDIOVASCULAR DISORDER [None]
  - CHEST PAIN [None]
  - CORONARY ARTERY DISEASE [None]
  - CORONARY ARTERY INSUFFICIENCY [None]
  - DIABETES MELLITUS [None]
  - DIABETES MELLITUS INADEQUATE CONTROL [None]
  - DIABETIC NEUROPATHY [None]
  - GLUCOSE TOLERANCE IMPAIRED [None]
  - ISCHAEMIC CARDIOMYOPATHY [None]
  - LEFT VENTRICULAR HYPERTROPHY [None]
  - METABOLIC SYNDROME [None]
  - PALPITATIONS [None]
  - TYPE 1 DIABETES MELLITUS [None]
  - TYPE 2 DIABETES MELLITUS [None]
